FAERS Safety Report 4288943-3 (Version None)
Quarter: 2004Q1

REPORT INFORMATION
  Report Type: 
  Country: None (occurrence: None)
  Receive Date: 20040209
  Receipt Date: 20031205
  Transmission Date: 20041129
  Serious: Yes (Hospitalization)
  Sender: FDA-Public Use
  Company Number: PHNU2003DE04321

PATIENT
  Age: 79 Year
  Sex: Male
  Weight: 83 kg

DRUGS (7)
  1. GLEEVEC [Suspect]
     Indication: CHRONIC MYELOID LEUKAEMIA
     Dosage: 400MG/DAY
     Route: 048
     Dates: start: 20031105, end: 20031201
  2. CYNT ^LILLY^ [Concomitant]
     Route: 048
  3. METOPROLOL [Concomitant]
     Route: 048
  4. TORSEMIDE [Concomitant]
     Route: 065
  5. SORTIS ^GOEDECKE^ [Concomitant]
     Route: 048
  6. INSULIN [Concomitant]
     Indication: DIABETES MELLITUS
     Route: 065
  7. CATAPRESAN [Concomitant]
     Route: 065

REACTIONS (4)
  - BLOOD PRESSURE INCREASED [None]
  - HYPERTENSIVE CRISIS [None]
  - NERVOUS SYSTEM DISORDER [None]
  - VISUAL DISTURBANCE [None]
